FAERS Safety Report 14850239 (Version 1)
Quarter: 2018Q2

REPORT INFORMATION
  Report Type: Spontaneous
  Country: US (occurrence: US)
  Receive Date: 20180505
  Receipt Date: 20180505
  Transmission Date: 20180711
  Serious: No
  Sender: FDA-Public Use
  Company Number: PHEH2018US016132

PATIENT
  Sex: Female

DRUGS (2)
  1. PREDNISOLONE ACETATE. [Suspect]
     Active Substance: PREDNISOLONE ACETATE
     Indication: CORNEAL DYSTROPHY
  2. PREDNISOLONE ACETATE. [Suspect]
     Active Substance: PREDNISOLONE ACETATE
     Indication: EYE INFLAMMATION
     Dosage: 1 GTT, TID
     Route: 047
     Dates: start: 20180424

REACTIONS (3)
  - Dry eye [Unknown]
  - Visual impairment [Unknown]
  - Vision blurred [Unknown]
